FAERS Safety Report 18764833 (Version 5)
Quarter: 2021Q1

REPORT INFORMATION
  Report Type: Report from Study
  Country: CN (occurrence: CN)
  Receive Date: 20210121
  Receipt Date: 20210320
  Transmission Date: 20210419
  Serious: Yes (Hospitalization)
  Sender: FDA-Public Use
  Company Number: CN-ROCHE-2751908

PATIENT
  Age: 66 Year
  Sex: Female
  Weight: 47.6 kg

DRUGS (26)
  1. PEMETREXED. [Suspect]
     Active Substance: PEMETREXED
     Indication: NON-SMALL CELL LUNG CANCER
     Dosage: DOSE LAST STUDY DRUG ADMIN PRIOR AE/SAE 550 MG?START DATE OF MOST RECENT DOSE OF STUDY DRUG PRIOR TO
     Route: 042
     Dates: start: 20201217
  2. RECOMBINANT HUMAN GRANULOCYTE COLONY?STIMULATING FACTOR INJECTION (REB [Concomitant]
     Dates: start: 20210114, end: 20210121
  3. DEXAMETHASONE SODIUM PHOSPHATE. [Concomitant]
     Active Substance: DEXAMETHASONE SODIUM PHOSPHATE
     Route: 048
     Dates: start: 20201217, end: 20201217
  4. FAT EMULSION, AMINO ACIDS (17) AND GLUCOSE (11%) [Concomitant]
     Dates: start: 20210107, end: 20210107
  5. LANSOPRAZOLE. [Concomitant]
     Active Substance: LANSOPRAZOLE
     Dates: start: 20201217, end: 20201217
  6. PALONOSETRON. [Concomitant]
     Active Substance: PALONOSETRON HYDROCHLORIDE
     Dates: start: 20201217, end: 20201217
  7. PALONOSETRON. [Concomitant]
     Active Substance: PALONOSETRON HYDROCHLORIDE
     Dates: start: 20210128, end: 20210128
  8. TIOPRONIN [Concomitant]
     Active Substance: TIOPRONIN
     Dates: start: 20210128, end: 20210128
  9. FAT EMULSION, AMINO ACIDS (17) AND GLUCOSE (11%) [Concomitant]
     Dates: start: 20210127, end: 20210127
  10. BLINDED ATEZOLIZUMAB [Suspect]
     Active Substance: ATEZOLIZUMAB
     Indication: NON-SMALL CELL LUNG CANCER
     Dosage: START DATE OF MOST RECENT DOSE OF STUDY DRUG PRIOR TO AE/SAE 08/JAN/2021
     Route: 042
     Dates: start: 20201217
  11. CARBOPLATIN. [Suspect]
     Active Substance: CARBOPLATIN
     Indication: NON-SMALL CELL LUNG CANCER
     Dosage: DOSE LAST STUDY DRUG ADMIN PRIOR AE/SAE 400 MG?START DATE OF MOST RECENT DOSE OF STUDY DRUG PRIOR TO
     Route: 042
     Dates: start: 20201217
  12. LANSOPRAZOLE. [Concomitant]
     Active Substance: LANSOPRAZOLE
     Dates: start: 20210128, end: 20210128
  13. FILGRASTIM [Concomitant]
     Active Substance: FILGRASTIM
     Dates: start: 20210106, end: 20210106
  14. RECOMBINANT HUMAN GRANULOCYTE COLONY?STIMULATING FACTOR INJECTION (REB [Concomitant]
     Dates: start: 20210106, end: 20210106
  15. DEXAMETHASONE SODIUM PHOSPHATE. [Concomitant]
     Active Substance: DEXAMETHASONE SODIUM PHOSPHATE
     Route: 042
     Dates: start: 20210108, end: 20210108
  16. PALONOSETRON. [Concomitant]
     Active Substance: PALONOSETRON HYDROCHLORIDE
     Dates: start: 20210108, end: 20210109
  17. FAT EMULSION, AMINO ACIDS (17) AND GLUCOSE (11%) [Concomitant]
     Dates: start: 20210109, end: 20210109
  18. BEVACIZUMAB. [Suspect]
     Active Substance: BEVACIZUMAB
     Indication: NON-SMALL CELL LUNG CANCER
     Dosage: DOSE LAST STUDY DRUG ADMIN PRIOR AE/SAE IS 730 MG?START DATE OF MOST RECENT DOSE OF STUDY DRUG PRIOR
     Route: 042
     Dates: start: 20201217
  19. NIFEDIPINE. [Concomitant]
     Active Substance: NIFEDIPINE
     Indication: HYPERTENSION
     Dates: start: 20150812
  20. TIOPRONIN [Concomitant]
     Active Substance: TIOPRONIN
     Dates: start: 20201217, end: 20201217
  21. CEFUROXIME SODIUM. [Concomitant]
     Active Substance: CEFUROXIME SODIUM
     Dates: start: 20210114, end: 20210121
  22. HYDROTALCITE [Concomitant]
     Active Substance: HYDROTALCITE
     Dates: start: 20200313
  23. DEXAMETHASONE. [Concomitant]
     Active Substance: DEXAMETHASONE
     Route: 048
     Dates: start: 20201217, end: 20201218
  24. LANSOPRAZOLE. [Concomitant]
     Active Substance: LANSOPRAZOLE
     Dates: start: 20210108, end: 20210109
  25. TIOPRONIN [Concomitant]
     Active Substance: TIOPRONIN
     Dates: start: 20210108, end: 20210109
  26. OLANZAPINE. [Concomitant]
     Active Substance: OLANZAPINE
     Dates: start: 20210108, end: 20210109

REACTIONS (1)
  - Febrile neutropenia [Not Recovered/Not Resolved]

NARRATIVE: CASE EVENT DATE: 20210114
